FAERS Safety Report 9107411 (Version 3)
Quarter: 2013Q2

REPORT INFORMATION
  Report Type: Spontaneous
  Country: FR (occurrence: FR)
  Receive Date: 20130221
  Receipt Date: 20130520
  Transmission Date: 20140414
  Serious: Yes (Hospitalization, Other)
  Sender: FDA-Public Use
  Company Number: FR-JNJFOC-20130208821

PATIENT
  Age: 67 Year
  Sex: Male
  Weight: 85 kg

DRUGS (1)
  1. STELARA [Suspect]
     Indication: PSORIASIS
     Dosage: APPROXIMATELY 10 INJECTIONS RECEIVED IN TOTAL
     Route: 058
     Dates: start: 201010

REACTIONS (2)
  - Basal cell carcinoma [Recovered/Resolved]
  - Cellulitis [Recovered/Resolved]
